FAERS Safety Report 23340952 (Version 1)
Quarter: 2023Q4

REPORT INFORMATION
  Report Type: Spontaneous
  Country: AR (occurrence: AR)
  Receive Date: 20231227
  Receipt Date: 20231227
  Transmission Date: 20240109
  Serious: No
  Sender: FDA-Public Use
  Company Number: AR-ALKEM LABORATORIES LIMITED-AR-ALKEM-2023-15294

PATIENT
  Age: 11 Year
  Sex: Male

DRUGS (5)
  1. VIGABATRIN [Suspect]
     Active Substance: VIGABATRIN
     Indication: Infantile spasms
     Dosage: 195 MILLIGRAM/KILOGRAM, QD
     Route: 065
  2. CORTICOTROPIN [Concomitant]
     Active Substance: CORTICOTROPIN
     Indication: Infantile spasms
     Dosage: UNK
     Route: 065
  3. AVP [Concomitant]
     Indication: Infantile spasms
     Dosage: UNK
     Route: 065
  4. PHENOBARBITAL [Concomitant]
     Active Substance: PHENOBARBITAL
     Indication: Infantile spasms
     Dosage: UNK
     Route: 065
  5. LVT [Concomitant]
     Indication: Infantile spasms
     Dosage: UNK
     Route: 065

REACTIONS (1)
  - Magnetic resonance imaging head abnormal [Recovering/Resolving]
